FAERS Safety Report 19714048 (Version 1)
Quarter: 2021Q3

REPORT INFORMATION
  Report Type: Spontaneous
  Country: US (occurrence: US)
  Receive Date: 20210817
  Receipt Date: 20210817
  Transmission Date: 20211014
  Serious: Yes (Hospitalization)
  Sender: FDA-Public Use
  Company Number: None

PATIENT
  Age: 47 Year
  Sex: Male

DRUGS (1)
  1. COSENTYX [Suspect]
     Active Substance: SECUKINUMAB
     Indication: PSORIASIS
     Dosage: OTHER FREQUENCY:OTHER;?
     Route: 058
     Dates: start: 201905

REACTIONS (6)
  - Pseudomonas infection [None]
  - Escherichia infection [None]
  - Therapy cessation [None]
  - Cellulitis [None]
  - Peripheral swelling [None]
  - Staphylococcal infection [None]

NARRATIVE: CASE EVENT DATE: 20210519
